FAERS Safety Report 7380952-0 (Version None)
Quarter: 2011Q1

REPORT INFORMATION
  Report Type: 
  Country: None (occurrence: None)
  Receive Date: 20110329
  Receipt Date: 20110323
  Transmission Date: 20110831
  Serious: Yes (Life-Threatening, Hospitalization, Other)
  Sender: FDA-Public Use
  Company Number: PHHO2011FR02230

PATIENT
  Sex: Female

DRUGS (6)
  1. CYCLOPHOSPHAMIDE [Suspect]
     Indication: ACUTE LYMPHOCYTIC LEUKAEMIA
     Dosage: UNK
     Dates: start: 20110120
  2. MORPHINE [Concomitant]
  3. PRIMPERAN TAB [Concomitant]
  4. STI571/CGP57148B [Suspect]
     Indication: ACUTE LYMPHOCYTIC LEUKAEMIA
     Dosage: UNK
     Route: 048
     Dates: start: 20110118, end: 20110131
  5. DEXAMETHASONE [Suspect]
     Indication: ACUTE LYMPHOCYTIC LEUKAEMIA
     Dosage: UNK
     Dates: start: 20110120
  6. FORTUM [Concomitant]

REACTIONS (20)
  - ILEUS [None]
  - GASTROINTESTINAL NECROSIS [None]
  - HEPATIC NEOPLASM [None]
  - HAEMATOCHEZIA [None]
  - HYPOTENSION [None]
  - PERITONITIS [None]
  - ASCITES [None]
  - LAPAROTOMY [None]
  - ABDOMINAL CAVITY DRAINAGE [None]
  - ILEOSTOMY [None]
  - ATELECTASIS [None]
  - COLECTOMY [None]
  - BONE MARROW FAILURE [None]
  - SEPTIC SHOCK [None]
  - COLITIS ULCERATIVE [None]
  - ABDOMINAL DISTENSION [None]
  - INTESTINAL PERFORATION [None]
  - COLITIS [None]
  - PLEURAL EFFUSION [None]
  - CHOLECYSTECTOMY [None]
